FAERS Safety Report 6155144-3 (Version None)
Quarter: 2009Q2

REPORT INFORMATION
  Report Type: 
  Country: None (occurrence: None)
  Receive Date: 20090415
  Receipt Date: 20090403
  Transmission Date: 20091009
  Serious: Yes (Other)
  Sender: FDA-Public Use
  Company Number: US-BAYER-200910002NA

PATIENT
  Age: 54 Year
  Sex: Female

DRUGS (7)
  1. BETASERON [Suspect]
     Indication: MULTIPLE SCLEROSIS
     Dosage: TOTAL DAILY DOSE: 8 MIU
     Route: 058
     Dates: start: 20090131
  2. BETASERON [Suspect]
     Dosage: TOTAL DAILY DOSE: 2 MIU
     Route: 058
     Dates: start: 20090109, end: 20090127
  3. BETASERON [Suspect]
     Dosage: TOTAL DAILY DOSE: 2 MIU
     Route: 058
     Dates: start: 20081230, end: 20081231
  4. VYTORIN [Concomitant]
  5. LEXAPRO [Concomitant]
  6. ASPIRIN [Concomitant]
  7. MOTRIN [Concomitant]

REACTIONS (8)
  - ABASIA [None]
  - EYE PAIN [None]
  - MULTIPLE SCLEROSIS [None]
  - MUSCULAR WEAKNESS [None]
  - POLLAKIURIA [None]
  - SOMNOLENCE [None]
  - SYNCOPE [None]
  - VERTIGO [None]
